FAERS Safety Report 21580038 (Version 1)
Quarter: 2022Q4

REPORT INFORMATION
  Report Type: Spontaneous
  Country: US (occurrence: US)
  Receive Date: 20221110
  Receipt Date: 20221110
  Transmission Date: 20230112
  Serious: Yes (Death)
  Sender: FDA-Public Use
  Company Number: US-MALLINCKRODT-T202205893

PATIENT
  Age: 42 Year

DRUGS (2)
  1. INOMAX [Suspect]
     Active Substance: NITRIC OXIDE
     Indication: Multiple organ dysfunction syndrome
     Dosage: 40 PPM (INHALATION)
     Route: 055
     Dates: start: 20221020, end: 20221030
  2. INOMAX [Suspect]
     Active Substance: NITRIC OXIDE
     Indication: Hepatic cirrhosis

REACTIONS (4)
  - Multiple organ dysfunction syndrome [Fatal]
  - Hepatic cirrhosis [Fatal]
  - Product use in unapproved indication [Unknown]
  - Product use issue [Unknown]

NARRATIVE: CASE EVENT DATE: 20221020
